FAERS Safety Report 19074830 (Version 1)
Quarter: 2021Q1

REPORT INFORMATION
  Report Type: Spontaneous
  Country: US (occurrence: US)
  Receive Date: 20210330
  Receipt Date: 20210330
  Transmission Date: 20210420
  Serious: Yes (Death)
  Sender: FDA-Public Use
  Company Number: US-PFIZER INC-2021320809

PATIENT
  Weight: .7 kg

DRUGS (2)
  1. PENTAZOCINE LACTATE [Suspect]
     Active Substance: PENTAZOCINE LACTATE
     Dosage: UNK
     Route: 064
  2. TRIPELENNAMINE [Suspect]
     Active Substance: TRIPELENNAMINE
     Dosage: UNK
     Route: 064

REACTIONS (3)
  - Maternal exposure during pregnancy [Fatal]
  - Premature baby [Fatal]
  - Toxicity to various agents [Fatal]
